FAERS Safety Report 24184373 (Version 1)
Quarter: 2024Q3

REPORT INFORMATION
  Report Type: Spontaneous
  Country: FR (occurrence: FR)
  Receive Date: 20240807
  Receipt Date: 20240807
  Transmission Date: 20241017
  Serious: Yes (Other)
  Sender: FRESENIUS KABI
  Company Number: None

PATIENT
  Age: 68 Year
  Sex: Female

DRUGS (4)
  1. PACLITAXEL [Suspect]
     Active Substance: PACLITAXEL
     Indication: Squamous cell carcinoma of lung
     Dosage: 258 MG PER CYCLE?ROUTE: INTRAVENOUS
     Dates: start: 20240627, end: 20240627
  2. CARBOPLATIN [Suspect]
     Active Substance: CARBOPLATIN
     Indication: Squamous cell carcinoma of lung
     Dosage: 340 MG PER CYCLE?ROUTE: INTRAVENOUS
     Dates: start: 20240627, end: 20240627
  3. OPDIVO [Suspect]
     Active Substance: NIVOLUMAB
     Indication: Squamous cell carcinoma of lung
     Dosage: 360 MG PER CYCLE?ROUTE: INTRAVENOUS
     Dates: start: 20240627, end: 20240627
  4. PEGFILGRASTIM [Suspect]
     Active Substance: PEGFILGRASTIM
     Indication: Bone marrow failure
     Dosage: ROUTE: INTRAVENOUS
     Dates: start: 20240629, end: 20240629

REACTIONS (1)
  - Toxic skin eruption [Unknown]

NARRATIVE: CASE EVENT DATE: 20240630
